FAERS Safety Report 4822758-X (Version None)
Quarter: 2005Q4

REPORT INFORMATION
  Report Type: 
  Country: None (occurrence: None)
  Receive Date: 20051104
  Receipt Date: 20051027
  Transmission Date: 20060501
  Serious: Yes (Hospitalization, Other)
  Sender: FDA-Public Use
  Company Number: 2004058768

PATIENT
  Age: 58 Year
  Sex: Male
  Weight: 260 kg

DRUGS (15)
  1. DILANTIN KAPSEAL [Suspect]
     Indication: CONVULSION
     Dosage: 300 MG QOD; 400 MG QOD., ORAL
     Route: 048
  2. FLONASE [Concomitant]
  3. MONTELUKAST (MONTELUKAST) [Concomitant]
  4. PREVACID [Concomitant]
  5. VALSARTAN [Concomitant]
  6. MAXZIDE [Concomitant]
  7. ASTELIN [Concomitant]
  8. IRON (IRON) [Concomitant]
  9. VITAMIN C ( VITAMIN C) [Concomitant]
  10. GLUCOSAMINE (GLUCOSAMINE) [Concomitant]
  11. VITAMIN E [Concomitant]
  12. MULTIVITAMIN [Concomitant]
  13. VITAMIN B12 [Concomitant]
  14. GARLIC (GARLIC) [Concomitant]
  15. IBUPROFEN [Concomitant]

REACTIONS (8)
  - ANTICONVULSANT DRUG LEVEL INCREASED [None]
  - CONFUSIONAL STATE [None]
  - CONTUSION [None]
  - CONVULSION [None]
  - FALL [None]
  - MUSCLE SPASMS [None]
  - SPEECH DISORDER [None]
  - TINNITUS [None]
